FAERS Safety Report 15614217 (Version 3)
Quarter: 2018Q4

REPORT INFORMATION
  Report Type: Spontaneous
  Country: US (occurrence: US)
  Receive Date: 20181113
  Receipt Date: 20181227
  Transmission Date: 20190205
  Serious: No
  Sender: FDA-Public Use
  Company Number: US-PFIZER INC-2018463400

PATIENT
  Age: 64 Year
  Sex: Female

DRUGS (1)
  1. BENZYLPENICILLIN POTASSIUM [Suspect]
     Active Substance: PENICILLIN G POTASSIUM
     Dosage: UNK

REACTIONS (4)
  - Urticaria [Unknown]
  - Drug hypersensitivity [Unknown]
  - Rash [Unknown]
  - Alopecia [Unknown]
